FAERS Safety Report 9285094 (Version 4)
Quarter: 2013Q3

REPORT INFORMATION
  Report Type: Report from Study
  Country: CA (occurrence: CA)
  Receive Date: 20130513
  Receipt Date: 20130701
  Transmission Date: 20140515
  Serious: Yes (Other)
  Sender: FDA-Public Use
  Company Number: CA-ROCHE-1191886

PATIENT
  Age: 68 Year
  Sex: Female
  Weight: 71 kg

DRUGS (14)
  1. ACTEMRA [Suspect]
     Indication: RHEUMATOID ARTHRITIS
     Route: 042
     Dates: start: 20120704, end: 20130507
  2. ACTEMRA [Suspect]
     Route: 042
     Dates: start: 20120926
  3. RITUXAN [Suspect]
     Indication: RHEUMATOID ARTHRITIS
     Route: 042
     Dates: start: 20130620, end: 20130620
  4. ARAVA [Concomitant]
  5. CELEBREX [Concomitant]
  6. RAMIPRIL [Concomitant]
  7. ATENOLOL [Concomitant]
  8. AMLODIPINE [Concomitant]
  9. TYLENOL [Concomitant]
  10. LANZOPRAL [Concomitant]
  11. DOCUSATE SODIUM [Concomitant]
  12. DIPHENHYDRAMINE HCL [Concomitant]
     Indication: PREMEDICATION
     Route: 048
     Dates: start: 20130620, end: 20130620
  13. ACETAMINOPHEN [Concomitant]
     Indication: PREMEDICATION
     Route: 048
     Dates: start: 20130620, end: 20130620
  14. METHYLPREDNISOLONE [Concomitant]
     Indication: PREMEDICATION
     Route: 042
     Dates: start: 20130620, end: 20130620

REACTIONS (6)
  - Drug ineffective [Unknown]
  - Pain in extremity [Not Recovered/Not Resolved]
  - Pain [Not Recovered/Not Resolved]
  - Musculoskeletal pain [Not Recovered/Not Resolved]
  - Infusion related reaction [Recovered/Resolved]
  - Platelet count decreased [Unknown]
